FAERS Safety Report 17973044 (Version 1)
Quarter: 2020Q3

REPORT INFORMATION
  Report Type: Spontaneous
  Country: US (occurrence: US)
  Receive Date: 20200701
  Receipt Date: 20200701
  Transmission Date: 20201103
  Serious: Yes (Hospitalization)
  Sender: FDA-Public Use
  Company Number: None

PATIENT
  Age: 57 Year
  Sex: Female

DRUGS (2)
  1. IMATINIB MES TAB 100MG [Suspect]
     Active Substance: IMATINIB MESYLATE
     Dosage: THERAPY START DATE 21?JUN?2020
     Route: 048
     Dates: start: 20200621
  2. ASPIRIN. [Concomitant]
     Active Substance: ASPIRIN

REACTIONS (1)
  - Palpitations [None]

NARRATIVE: CASE EVENT DATE: 20200606
